FAERS Safety Report 5403413-4 (Version None)
Quarter: 2007Q3

REPORT INFORMATION
  Report Type: 
  Country: None (occurrence: None)
  Receive Date: 20070730
  Receipt Date: 20070717
  Transmission Date: 20080115
  Serious: Yes (Death, Other)
  Sender: FDA-Public Use
  Company Number: 2007JP003395

PATIENT
  Age: 15 Year
  Sex: Female

DRUGS (7)
  1. PROGRAF [Suspect]
     Indication: RENAL TRANSPLANT
  2. MYCOPHENOLATE MOFETIL [Concomitant]
  3. SIMULECT [Concomitant]
  4. STEROID FORMULATION [Concomitant]
  5. GAMMAGLOBIN (IMMUNOGLOBULIN HUMAN NORMAL) [Concomitant]
  6. ACYCLOVIR [Concomitant]
  7. NAFAMOSTAT MESILATE (NAFAMOSTAT MESILATE) [Concomitant]

REACTIONS (7)
  - ALANINE AMINOTRANSFERASE INCREASED [None]
  - ASPARTATE AMINOTRANSFERASE INCREASED [None]
  - BACK PAIN [None]
  - CARDIO-RESPIRATORY ARREST [None]
  - CONVULSION [None]
  - HERPES ZOSTER [None]
  - PLATELET COUNT DECREASED [None]
